FAERS Safety Report 25069452 (Version 1)
Quarter: 2025Q1

REPORT INFORMATION
  Report Type: Other
  Country: IN (occurrence: IN)
  Receive Date: 20250312
  Receipt Date: 20250312
  Transmission Date: 20250408
  Serious: Yes (Death, Other)
  Sender: CREEKWOOD PHARMACEUTICALS LLC
  Company Number: IN-Creekwood Pharmaceuticals LLC-2172726

PATIENT
  Age: 51 Year
  Sex: Male

DRUGS (5)
  1. HYDROXYCHLOROQUINE SULFATE [Suspect]
     Active Substance: HYDROXYCHLOROQUINE SULFATE
     Indication: Rheumatoid arthritis
  2. SULFASALAZINE [Suspect]
     Active Substance: SULFASALAZINE
  3. PREDNISOLONE [Suspect]
     Active Substance: PREDNISOLONE
  4. METHOTREXATE [Suspect]
     Active Substance: METHOTREXATE
  5. LEFLUNOMIDE [Suspect]
     Active Substance: LEFLUNOMIDE

REACTIONS (5)
  - Multiple organ dysfunction syndrome [Fatal]
  - Drug reaction with eosinophilia and systemic symptoms [Fatal]
  - Acute kidney injury [Fatal]
  - Toxic epidermal necrolysis [Fatal]
  - Neutropenic sepsis [Fatal]
